FAERS Safety Report 18679809 (Version 2)
Quarter: 2021Q1

REPORT INFORMATION
  Report Type: Spontaneous
  Country: US (occurrence: US)
  Receive Date: 20201230
  Receipt Date: 20210106
  Transmission Date: 20210419
  Serious: Yes (Hospitalization, Other)
  Sender: FDA-Public Use
  Company Number: US-GLENMARK PHARMACEUTICALS-2020GMK051312

PATIENT
  Age: 24 Year
  Sex: Female

DRUGS (1)
  1. BETAMETHASONE DIPROPIONATE. [Suspect]
     Active Substance: BETAMETHASONE DIPROPIONATE
     Indication: FOETAL HEART RATE INDETERMINATE
     Dosage: 12 MILLIGRAM, QD
     Route: 030

REACTIONS (2)
  - Atrial fibrillation [Recovered/Resolved]
  - Maternal exposure during pregnancy [Unknown]
